FAERS Safety Report 25552241 (Version 3)
Quarter: 2025Q3

REPORT INFORMATION
  Report Type: Report from Study
  Country: CA (occurrence: CA)
  Receive Date: 20250715
  Receipt Date: 20250812
  Transmission Date: 20251021
  Serious: Yes (Other)
  Sender: CURRAX PHARMACEUTICALS
  Company Number: CA-BAUSCH-BH-2025-014457

PATIENT
  Age: 68 Year
  Sex: Male
  Weight: 140.59 kg

DRUGS (6)
  1. CONTRAVE [Suspect]
     Active Substance: BUPROPION HYDROCHLORIDE\NALTREXONE HYDROCHLORIDE
     Indication: Weight control
     Dosage: 90/8 MG, 1 TABLET
     Route: 048
     Dates: start: 202506, end: 202506
  2. CONTRAVE [Suspect]
     Active Substance: BUPROPION HYDROCHLORIDE\NALTREXONE HYDROCHLORIDE
     Dosage: 90/8 MG, 2 TABLET/DAY, (1 DOSAGE FORM, 1 IN 12 HOUR)
     Route: 048
     Dates: start: 202506, end: 202506
  3. CONTRAVE [Suspect]
     Active Substance: BUPROPION HYDROCHLORIDE\NALTREXONE HYDROCHLORIDE
     Dosage: 90/8 MG, 3 TABLET/DAY (1 IN 12 HOUR)
     Route: 048
     Dates: start: 202506, end: 202506
  4. CONTRAVE [Suspect]
     Active Substance: BUPROPION HYDROCHLORIDE\NALTREXONE HYDROCHLORIDE
     Dosage: 90/8 MG,  4.0 DOSAGE FORM (2 DOSAGE FORM, 1 IN 12 HOUR)
     Route: 065
     Dates: start: 202506, end: 2025
  5. CONTRAVE [Suspect]
     Active Substance: BUPROPION HYDROCHLORIDE\NALTREXONE HYDROCHLORIDE
     Dosage: 90/8 MG, 2 TABLET AM I TABLET PM (1 IN 12 HOUR)
     Route: 048
     Dates: start: 2025, end: 2025
  6. INDAPAMIDE\PERINDOPRIL [Concomitant]
     Active Substance: INDAPAMIDE\PERINDOPRIL
     Indication: Blood pressure management
     Route: 048
     Dates: start: 2025

REACTIONS (5)
  - Musculoskeletal discomfort [Unknown]
  - Faeces hard [Unknown]
  - Paraesthesia [Not Recovered/Not Resolved]
  - Constipation [Not Recovered/Not Resolved]
  - Hyperhidrosis [Not Recovered/Not Resolved]

NARRATIVE: CASE EVENT DATE: 20250601
